FAERS Safety Report 8647445 (Version 4)
Quarter: 2012Q4

REPORT INFORMATION
  Report Type: Report from Study
  Country: US (occurrence: US)
  Receive Date: 20120703
  Receipt Date: 20121105
  Transmission Date: 20130627
  Serious: Yes (Death, Other)
  Sender: FDA-Public Use
  Company Number: US-ASTELLAS-2012US005742

PATIENT
  Age: 65 Year
  Sex: Female
  Weight: 59 kg

DRUGS (4)
  1. ERLOTINIB TABLET [Suspect]
     Indication: NON-SMALL CELL LUNG CANCER
     Dosage: 150 mg, UID/QD
     Route: 048
     Dates: start: 20120328, end: 20120516
  2. ERLOTINIB TABLET [Suspect]
     Dosage: 150 mg, UID/QD
     Route: 048
     Dates: end: 20120618
  3. MK2206 [Suspect]
     Indication: NON-SMALL CELL LUNG CANCER
     Dosage: 45 mg, qod
     Route: 048
     Dates: start: 20120328, end: 20120515
  4. MK2206 [Suspect]
     Dosage: 45 mg, qod
     Route: 048
     Dates: end: 20120610

REACTIONS (5)
  - Lymphocyte count decreased [Recovered/Resolved]
  - Lymphocyte count decreased [Not Recovered/Not Resolved]
  - Hypoalbuminaemia [Not Recovered/Not Resolved]
  - Adverse event [Unknown]
  - Malignant neoplasm progression [Fatal]
